FAERS Safety Report 19095011 (Version 2)
Quarter: 2024Q1

REPORT INFORMATION
  Report Type: Spontaneous
  Country: IE (occurrence: IE)
  Receive Date: 20210406
  Receipt Date: 20240311
  Transmission Date: 20240409
  Serious: Yes (Other)
  Sender: FDA-Public Use
  Company Number: IE-CELLTRION INC.-2021IE004335

PATIENT

DRUGS (9)
  1. RITUXIMAB [Suspect]
     Active Substance: RITUXIMAB
     Indication: Diffuse large B-cell lymphoma
     Dosage: RCHOP 3 CYCLES
     Route: 065
     Dates: start: 2013
  2. RITUXIMAB [Suspect]
     Active Substance: RITUXIMAB
     Dosage: R BENDA
     Route: 065
     Dates: start: 20150101
  3. BENDAMUSTINE [Suspect]
     Active Substance: BENDAMUSTINE
     Indication: Diffuse large B-cell lymphoma
     Dosage: UNK
     Route: 065
     Dates: start: 2015
  4. OBINUTUZUMAB [Suspect]
     Active Substance: OBINUTUZUMAB
     Indication: Mantle cell lymphoma
     Dosage: UNK
     Route: 042
     Dates: start: 202009
  5. LENALIDOMIDE [Suspect]
     Active Substance: LENALIDOMIDE
     Indication: Mantle cell lymphoma
     Dosage: UNK
     Route: 065
     Dates: start: 202009
  6. PREDNISONE [Suspect]
     Active Substance: PREDNISONE
     Indication: Diffuse large B-cell lymphoma
     Dosage: RCHOP 3 CYCLES
     Route: 065
     Dates: start: 2013
  7. DOXORUBICIN [Suspect]
     Active Substance: DOXORUBICIN
     Indication: Diffuse large B-cell lymphoma
     Dosage: RCHOP 3 CYCLES
     Route: 065
     Dates: start: 2013
  8. VINCRISTINE [Suspect]
     Active Substance: VINCRISTINE
     Indication: Diffuse large B-cell lymphoma
     Dosage: RCHOP 3 CYCLES
     Route: 065
     Dates: start: 2013
  9. CYCLOPHOSPHAMIDE [Suspect]
     Active Substance: CYCLOPHOSPHAMIDE
     Indication: Diffuse large B-cell lymphoma
     Dosage: RCHOP 3 CYCLES
     Route: 065
     Dates: start: 2013

REACTIONS (3)
  - Diffuse large B-cell lymphoma recurrent [Unknown]
  - Intentional product use issue [Unknown]
  - Off label use [Unknown]
